FAERS Safety Report 8536796 (Version 7)
Quarter: 2013Q3

REPORT INFORMATION
  Report Type: Report from Study
  Country: TH (occurrence: TH)
  Receive Date: 20120430
  Receipt Date: 20130916
  Transmission Date: 20140515
  Serious: Yes (Death, Hospitalization)
  Sender: FDA-Public Use
  Company Number: TH-ROCHE-1063684

PATIENT
  Age: 58 Year
  Sex: Male
  Weight: 60 kg

DRUGS (6)
  1. PEG-INTERFERON ALFA 2A [Suspect]
     Indication: HEPATITIS C
     Route: 065
     Dates: start: 20111123
  2. PEG-INTERFERON ALFA 2A [Suspect]
     Route: 065
     Dates: start: 20111214
  3. PEG-INTERFERON ALFA 2A [Suspect]
     Route: 065
     Dates: start: 20120111
  4. RIBAVIRIN [Suspect]
     Indication: HEPATITIS C
     Route: 065
     Dates: start: 20111123, end: 20120321
  5. BLINDED ALISPORIVIR [Suspect]
     Indication: HEPATITIS C
     Route: 048
     Dates: start: 20111123, end: 20120322
  6. FOLIC ACID [Concomitant]

REACTIONS (3)
  - Pancreatitis necrotising [Fatal]
  - Multi-organ failure [Fatal]
  - Hypertriglyceridaemia [Unknown]
